FAERS Safety Report 5720216-1 (Version None)
Quarter: 2008Q2

REPORT INFORMATION
  Report Type: 
  Country: None (occurrence: None)
  Receive Date: 20080428
  Receipt Date: 20070928
  Transmission Date: 20081010
  Serious: No
  Sender: FDA-Public Use
  Company Number: US-AMGEN-US245436

PATIENT
  Sex: Female
  Weight: 69 kg

DRUGS (5)
  1. SENSIPAR [Suspect]
     Indication: HYPERPARATHYROIDISM SECONDARY
     Route: 048
     Dates: start: 20050927
  2. VENOFER [Concomitant]
     Route: 065
     Dates: start: 20070912, end: 20070919
  3. NEURONTIN [Concomitant]
     Route: 065
     Dates: start: 20070720
  4. RENAGEL [Concomitant]
     Route: 065
     Dates: start: 20060619
  5. SODIUM BICARBONATE [Concomitant]
     Route: 065
     Dates: start: 20070725

REACTIONS (8)
  - ABDOMINAL PAIN [None]
  - DIARRHOEA [None]
  - EYE PRURITUS [None]
  - FEELING ABNORMAL [None]
  - HEADACHE [None]
  - NAUSEA [None]
  - RHINORRHOEA [None]
  - VOMITING [None]
